FAERS Safety Report 13425700 (Version 1)
Quarter: 2017Q2

REPORT INFORMATION
  Report Type: Spontaneous
  Country: US (occurrence: US)
  Receive Date: 20170411
  Receipt Date: 20170411
  Transmission Date: 20170830
  Serious: No
  Sender: FDA-Public Use
  Company Number: US-JNJFOC-20170121571

PATIENT
  Sex: Female

DRUGS (1)
  1. DURAGESIC [Suspect]
     Active Substance: FENTANYL
     Indication: PAIN
     Route: 062

REACTIONS (5)
  - Hot flush [Not Recovered/Not Resolved]
  - Product quality issue [Not Recovered/Not Resolved]
  - Underdose [Unknown]
  - Malaise [Not Recovered/Not Resolved]
  - Night sweats [Not Recovered/Not Resolved]
